FAERS Safety Report 8893792 (Version 4)
Quarter: 2015Q4

REPORT INFORMATION
  Report Type: Report from Study
  Country: US (occurrence: US)
  Receive Date: 20121107
  Receipt Date: 20151130
  Transmission Date: 20160305
  Serious: No
  Sender: FDA-Public Use
  Company Number: US-AMGEN-USASP2011024873

PATIENT
  Age: 31 Year
  Sex: Female

DRUGS (16)
  1. PREDNISONE. [Concomitant]
     Active Substance: PREDNISONE
     Dosage: 5 MG, QD
     Route: 048
     Dates: start: 201010, end: 201102
  2. ENBREL [Suspect]
     Active Substance: ETANERCEPT
     Dosage: UNK
     Route: 065
  3. ENBREL [Suspect]
     Active Substance: ETANERCEPT
     Dosage: UNK
     Route: 058
  4. VITAMIN D                          /00107901/ [Concomitant]
     Active Substance: ERGOCALCIFEROL
     Dosage: UNK UNK, QD
     Route: 048
  5. ZANTAC [Concomitant]
     Active Substance: RANITIDINE HYDROCHLORIDE
     Indication: DYSPEPSIA
     Dosage: 150 MG, BID
     Route: 048
     Dates: start: 201107, end: 20111005
  6. ENBREL [Suspect]
     Active Substance: ETANERCEPT
     Dosage: UNK
     Route: 058
  7. CALCIUM CITRATE [Concomitant]
     Active Substance: CALCIUM CITRATE
     Dosage: 750 MG, BID
     Route: 048
  8. ENBREL [Suspect]
     Active Substance: ETANERCEPT
     Indication: COGAN^S SYNDROME
     Dosage: 50 MG, QWK
     Route: 058
     Dates: start: 200910
  9. ENBREL [Suspect]
     Active Substance: ETANERCEPT
     Dosage: UNK
     Route: 065
  10. PRENATAL VITAMINS                  /01549301/ [Concomitant]
     Active Substance: VITAMINS
     Dosage: UNK UNK, QD
     Route: 048
     Dates: start: 201010
  11. CALCIUM CITRATE [Concomitant]
     Active Substance: CALCIUM CITRATE
     Dosage: 630 MG, QD
     Route: 048
     Dates: start: 2007
  12. PREDNISONE. [Concomitant]
     Active Substance: PREDNISONE
     Dosage: 2.5 MG, QD
     Route: 048
     Dates: start: 201102, end: 201103
  13. FOLIC ACID. [Concomitant]
     Active Substance: FOLIC ACID
     Dosage: 400 MUG, QD
     Route: 048
     Dates: start: 201010
  14. ASPIRIN. [Concomitant]
     Active Substance: ASPIRIN
     Dosage: 81 MG, QD
     Route: 048
     Dates: start: 201102, end: 20111116
  15. COLACE [Concomitant]
     Active Substance: DOCUSATE SODIUM
     Indication: CONSTIPATION
     Dosage: 100 MG, BID
     Route: 048
     Dates: start: 201107, end: 20111101
  16. LOTEMAX [Concomitant]
     Active Substance: LOTEPREDNOL ETABONATE
     Indication: COGAN^S SYNDROME
     Dosage: UNK UNK, BID
     Route: 047
     Dates: start: 200704

REACTIONS (6)
  - Breast cyst [Unknown]
  - Iron deficiency [Recovered/Resolved]
  - Balance disorder [Unknown]
  - Pregnancy [Recovered/Resolved]
  - Dizziness [Unknown]
  - Off label use [Unknown]

NARRATIVE: CASE EVENT DATE: 200910
